FAERS Safety Report 6105980-4 (Version None)
Quarter: 2009Q1

REPORT INFORMATION
  Report Type: 
  Country: None (occurrence: None)
  Receive Date: 20090306
  Receipt Date: 20090306
  Transmission Date: 20090719
  Serious: No
  Sender: FDA-Public Use
  Company Number: None

PATIENT
  Sex: Female
  Weight: 54.4316 kg

DRUGS (1)
  1. HYDROCHLOROTHIAZDE TAB [Suspect]
     Indication: HYPERTENSION
     Dosage: 1/2 TABLET ONCE A DAY
     Dates: start: 20090206, end: 20090216

REACTIONS (2)
  - NAUSEA [None]
  - PARAESTHESIA ORAL [None]
